FAERS Safety Report 8575200-X (Version None)
Quarter: 2012Q3

REPORT INFORMATION
  Report Type: 
  Country: None (occurrence: None)
  Receive Date: 20120807
  Receipt Date: 20120730
  Transmission Date: 20120928
  Serious: Yes (Other)
  Sender: FDA-Public Use
  Company Number: DK-BAYER-2012-076312

PATIENT
  Age: 58 Year
  Sex: Female

DRUGS (2)
  1. HORMONES NOS [Concomitant]
  2. MIRENA [Suspect]
     Dosage: 20 MCG/24HR, CONT
     Route: 015
     Dates: end: 20120404

REACTIONS (1)
  - BREAST CANCER [None]
